FAERS Safety Report 6155293-X (Version None)
Quarter: 2009Q2

REPORT INFORMATION
  Report Type: 
  Country: None (occurrence: None)
  Receive Date: 20090410
  Receipt Date: 20090410
  Transmission Date: 20091009
  Serious: Yes (Hospitalization)
  Sender: FDA-Public Use
  Company Number: None

PATIENT
  Sex: Female
  Weight: 48.0813 kg

DRUGS (7)
  1. MEGESTROL ACETATE [Suspect]
     Indication: DECREASED APPETITE
     Dosage: 20ML = 800MG ONCE DAILY PO
     Route: 048
     Dates: start: 20090204, end: 20090325
  2. MEGESTROL ACETATE [Suspect]
     Indication: WEIGHT DECREASED
     Dosage: 20ML = 800MG ONCE DAILY PO
     Route: 048
     Dates: start: 20090204, end: 20090325
  3. LORAZEPAM [Concomitant]
  4. RISPERIDONE [Concomitant]
  5. MORPHINE SULFATE [Concomitant]
  6. LEVETIRACETAM [Concomitant]
  7. FLUCONAZOLE [Concomitant]

REACTIONS (1)
  - DEEP VEIN THROMBOSIS [None]
